FAERS Safety Report 7462614-4 (Version None)
Quarter: 2011Q2

REPORT INFORMATION
  Report Type: 
  Country: None (occurrence: None)
  Receive Date: 20110506
  Receipt Date: 20110426
  Transmission Date: 20111010
  Serious: Yes (Hospitalization)
  Sender: FDA-Public Use
  Company Number: TW-SANOFI-AVENTIS-2011SA025653

PATIENT
  Age: 71 Year
  Sex: Female

DRUGS (3)
  1. ENOXAPARIN SODIUM [Suspect]
     Route: 058
  2. ACETYL SALICYLIC ACID USP BAT [Suspect]
     Dosage: LOADING DOSE
     Route: 065
  3. CLOPIDOGREL BISULFATE [Suspect]
     Dosage: LOADING DOSE OF 300 MG
     Route: 065

REACTIONS (4)
  - RENAL FAILURE ACUTE [None]
  - HAEMORRHAGE INTRACRANIAL [None]
  - HEMIPARESIS [None]
  - MUSCLE HAEMORRHAGE [None]
